FAERS Safety Report 4929794-3 (Version None)
Quarter: 2006Q1

REPORT INFORMATION
  Report Type: 
  Country: None (occurrence: None)
  Receive Date: 20060301
  Receipt Date: 20050928
  Transmission Date: 20060701
  Serious: Yes (Hospitalization)
  Sender: FDA-Public Use
  Company Number: US-MERCK-0509USA04813

PATIENT
  Age: 67 Year
  Sex: Male
  Weight: 89 kg

DRUGS (10)
  1. VIOXX [Suspect]
     Indication: SHOULDER PAIN
     Route: 048
     Dates: start: 20040329, end: 20040718
  2. HYDROCHLOROTHIAZIDE [Concomitant]
     Route: 065
  3. POTASSIUM (UNSPECIFIED) [Concomitant]
     Route: 065
  4. METFORMIN [Concomitant]
     Route: 065
  5. COUMADIN [Concomitant]
     Route: 065
  6. CARDIZEM [Concomitant]
     Route: 065
  7. GLUCOPHAGE [Concomitant]
     Route: 065
  8. GLUCOTROL [Concomitant]
     Route: 065
  9. DIGITEK [Concomitant]
     Route: 065
  10. CARTIA (ASPIRIN) [Concomitant]
     Route: 065

REACTIONS (9)
  - ATRIAL FIBRILLATION [None]
  - CEREBROVASCULAR ACCIDENT [None]
  - DEPRESSED MOOD [None]
  - DEPRESSION [None]
  - DIABETES MELLITUS [None]
  - DIABETES MELLITUS INADEQUATE CONTROL [None]
  - HYPERTENSION [None]
  - INSOMNIA [None]
  - SEASONAL ALLERGY [None]
